FAERS Safety Report 21570682 (Version 1)
Quarter: 2022Q4

REPORT INFORMATION
  Report Type: Spontaneous
  Country: IT (occurrence: IT)
  Receive Date: 20221109
  Receipt Date: 20221109
  Transmission Date: 20230112
  Serious: Yes (Hospitalization, Disabling, Other)
  Sender: FDA-Public Use
  Company Number: IT-009507513-2211ITA001080

PATIENT
  Sex: Female

DRUGS (4)
  1. PEMBROLIZUMAB [Suspect]
     Active Substance: PEMBROLIZUMAB
     Indication: Ovarian cancer
     Dosage: UNK
     Dates: start: 20190531, end: 20200220
  2. CORTISONE [Suspect]
     Active Substance: CORTISONE
     Dosage: UNK
  3. CARBOPLATIN [Suspect]
     Active Substance: CARBOPLATIN
     Indication: Ovarian cancer
     Dosage: AUC 5, QW
  4. TAXOL [Suspect]
     Active Substance: PACLITAXEL
     Indication: Ovarian cancer
     Dosage: 175 MILLIGRAM/SQ. METER, QW
     Dates: start: 20190531

REACTIONS (12)
  - Encephalopathy [Unknown]
  - General physical health deterioration [Unknown]
  - Asthenia [Not Recovered/Not Resolved]
  - Coronary artery stenosis [Unknown]
  - Hyperpyrexia [Unknown]
  - Pyrexia [Unknown]
  - Candida test positive [Unknown]
  - Escherichia test positive [Unknown]
  - Leukocytosis [Unknown]
  - Nausea [Unknown]
  - Arthralgia [Unknown]
  - Cough [Unknown]

NARRATIVE: CASE EVENT DATE: 20200101
